FAERS Safety Report 6567607-7 (Version None)
Quarter: 2010Q1

REPORT INFORMATION
  Report Type: 
  Country: None (occurrence: None)
  Receive Date: 20100202
  Receipt Date: 20100128
  Transmission Date: 20100710
  Serious: Yes (Disabling)
  Sender: FDA-Public Use
  Company Number: CO-MERCK-0911COL00004

PATIENT
  Age: 40 Year
  Sex: Male
  Weight: 54 kg

DRUGS (6)
  1. ISENTRESS [Suspect]
     Indication: HIV INFECTION
     Route: 048
     Dates: end: 20090101
  2. ISENTRESS [Suspect]
     Route: 048
     Dates: start: 20100101
  3. DARUNAVIR [Concomitant]
     Indication: HIV INFECTION
     Route: 048
     Dates: end: 20090101
  4. DARUNAVIR [Concomitant]
     Route: 048
     Dates: start: 20100101
  5. ETRAVIRINE [Concomitant]
     Indication: HIV INFECTION
     Route: 048
     Dates: start: 20100101
  6. ETRAVIRINE [Concomitant]
     Route: 048
     Dates: end: 20090101

REACTIONS (2)
  - BLOOD CREATINE PHOSPHOKINASE INCREASED [None]
  - WEIGHT DECREASED [None]
